FAERS Safety Report 10707980 (Version 1)
Quarter: 2015Q1

REPORT INFORMATION
  Report Type: Spontaneous
  Country: US (occurrence: US)
  Receive Date: 20150113
  Receipt Date: 20150113
  Transmission Date: 20150721
  Serious: No
  Sender: FDA-Public Use
  Company Number: US-TEVA-533542USA

PATIENT
  Age: 59 Year
  Sex: Female

DRUGS (1)
  1. FENTORA [Suspect]
     Active Substance: FENTANYL CITRATE
     Indication: PRODUCT USED FOR UNKNOWN INDICATION
     Dates: end: 20150101

REACTIONS (3)
  - Abdominal pain upper [Unknown]
  - Drug withdrawal syndrome [Unknown]
  - Chills [Unknown]

NARRATIVE: CASE EVENT DATE: 201501
